FAERS Safety Report 8877107 (Version 2)
Quarter: 2012Q4

REPORT INFORMATION
  Report Type: 
  Country: US (occurrence: None)
  Receive Date: 20121101
  Receipt Date: 20121114
  Transmission Date: 20130627
  Serious: Yes (Other)
  Sender: FDA-Public Use
  Company Number: None

PATIENT
  Age: 49 Year
  Sex: Female

DRUGS (1)
  1. TRIAMCINOLONE [Suspect]
     Dates: start: 20120621, end: 20120621

REACTIONS (9)
  - Sinus disorder [None]
  - Swelling [None]
  - Musculoskeletal pain [None]
  - Back pain [None]
  - Visual impairment [None]
  - Photophobia [None]
  - Fatigue [None]
  - Mental status changes [None]
  - Memory impairment [None]
